FAERS Safety Report 4530921-0 (Version None)
Quarter: 2004Q4

REPORT INFORMATION
  Report Type: 
  Country: None (occurrence: None)
  Receive Date: 20041215
  Receipt Date: 20041130
  Transmission Date: 20050328
  Serious: Yes (Death)
  Sender: FDA-Public Use
  Company Number: 2004-05079

PATIENT
  Age: 71 Year
  Sex: Female

DRUGS (4)
  1. COLCHICINE (WATSON LABORATORIES) (COLCHICINE) TABLET, 0.6MG [Suspect]
     Indication: PAIN IN EXTREMITY
     Dosage: 2 FIRST TIME, + 1 AFTER, 10 TOTAL, ORAL
     Route: 048
     Dates: start: 20030101, end: 20030801
  2. NITROPACE [Concomitant]
  3. THYROXINE [Concomitant]
  4. NORVASC [Concomitant]

REACTIONS (4)
  - CONFUSIONAL STATE [None]
  - MENTAL STATUS CHANGES [None]
  - UPPER GASTROINTESTINAL HAEMORRHAGE [None]
  - VOMITING [None]
